FAERS Safety Report 12116874 (Version 3)
Quarter: 2016Q1

REPORT INFORMATION
  Report Type: Spontaneous
  Country: US (occurrence: US)
  Receive Date: 20160225
  Receipt Date: 20160325
  Transmission Date: 20160526
  Serious: Yes (Other)
  Sender: FDA-Public Use
  Company Number: US-TEVA-636448USA

PATIENT
  Age: 52 Year
  Sex: Female

DRUGS (1)
  1. ZECUITY [Suspect]
     Active Substance: SUMATRIPTAN SUCCINATE
     Indication: MIGRAINE
     Route: 062
     Dates: start: 20160201, end: 20160201

REACTIONS (11)
  - Sunburn [Unknown]
  - Drug effect incomplete [Recovered/Resolved]
  - Application site exfoliation [Unknown]
  - Drug ineffective [Recovered/Resolved]
  - Therapeutic response delayed [Recovered/Resolved]
  - Application site discomfort [Unknown]
  - Incorrect drug administration duration [Recovered/Resolved]
  - Product label confusion [Recovered/Resolved]
  - Application site warmth [Unknown]
  - Application site erythema [Unknown]
  - Application site pain [Recovered/Resolved]

NARRATIVE: CASE EVENT DATE: 20160201
